FAERS Safety Report 15138944 (Version 1)
Quarter: 2018Q3

REPORT INFORMATION
  Report Type: Spontaneous
  Country: US (occurrence: US)
  Receive Date: 20180713
  Receipt Date: 20180713
  Transmission Date: 20181010
  Serious: Yes (Hospitalization, Other)
  Sender: FDA-Public Use
  Company Number: US-ACCORD-069507

PATIENT
  Age: 62 Year
  Sex: Female

DRUGS (1)
  1. FLUOROURACIL. [Suspect]
     Active Substance: FLUOROURACIL
     Indication: PANCREATIC CARCINOMA
     Route: 042

REACTIONS (4)
  - Electrocardiogram T wave peaked [Unknown]
  - Electrocardiogram ST segment elevation [Recovered/Resolved]
  - Electrocardiogram ST segment depression [Unknown]
  - Myocardial bridging [Unknown]
